FAERS Safety Report 7313757-7 (Version None)
Quarter: 2011Q1

REPORT INFORMATION
  Report Type: 
  Country: None (occurrence: None)
  Receive Date: 20110216
  Receipt Date: 20110216
  Transmission Date: 20110831
  Serious: Yes (Other)
  Sender: FDA-Public Use
  Company Number: None

PATIENT
  Sex: Male
  Weight: 54.4316 kg

DRUGS (1)
  1. SUBOXONE [Suspect]
     Indication: DEPENDENCE
     Dosage: SUBOXONE FILM 8MO./2MO. 2 STRIPS DTAILY SL
     Route: 060
     Dates: start: 20110118, end: 20110215

REACTIONS (3)
  - GLOSSITIS [None]
  - DYSGEUSIA [None]
  - GLOSSODYNIA [None]
